FAERS Safety Report 4389071-9 (Version None)
Quarter: 2004Q2

REPORT INFORMATION
  Report Type: 
  Country: None (occurrence: None)
  Receive Date: 20040628
  Receipt Date: 20040617
  Transmission Date: 20050107
  Serious: Yes (Other)
  Sender: FDA-Public Use
  Company Number: US-SHR-03-0008382

PATIENT
  Age: 43 Year
  Sex: Female
  Weight: 53.5 kg

DRUGS (8)
  1. CLIMARA [Suspect]
     Indication: HORMONE REPLACEMENT THERAPY
     Dosage: SEE IMAGE
     Route: 062
     Dates: start: 20010601, end: 20010801
  2. CLIMARA [Suspect]
     Indication: HORMONE REPLACEMENT THERAPY
     Dosage: SEE IMAGE
     Route: 062
     Dates: start: 20010801
  3. . [Concomitant]
  4. . [Concomitant]
  5. LEXAPRO [Suspect]
     Indication: DEPRESSION
     Dates: end: 20030101
  6. MULTIVITAMIN [Concomitant]
  7. TESTOSTERONE [Concomitant]
  8. REMERON [Concomitant]

REACTIONS (10)
  - ALOPECIA [None]
  - ANXIETY [None]
  - DEPRESSION [None]
  - DISTURBANCE IN ATTENTION [None]
  - DIZZINESS [None]
  - FEELING ABNORMAL [None]
  - IRRITABILITY [None]
  - MENOPAUSE [None]
  - MOOD SWINGS [None]
  - SINUS TACHYCARDIA [None]
